FAERS Safety Report 7586861-6 (Version None)
Quarter: 2011Q3

REPORT INFORMATION
  Report Type: 
  Country: None (occurrence: None)
  Receive Date: 20110701
  Receipt Date: 20110621
  Transmission Date: 20111222
  Serious: Yes (Hospitalization)
  Sender: FDA-Public Use
  Company Number: US-MYLANLABS-2011S1012955

PATIENT
  Age: 19 Year
  Sex: Male

DRUGS (4)
  1. MORPHINE [Suspect]
     Indication: SICKLE CELL ANAEMIA
     Route: 065
  2. DILAUDID [Suspect]
     Indication: SICKLE CELL ANAEMIA
     Route: 065
  3. NALBUPHINE [Suspect]
     Indication: SICKLE CELL ANAEMIA
     Dosage: STARTING DOSE OF 0.075 MG/KG/H
     Route: 051
  4. FENTANYL [Suspect]
     Indication: SICKLE CELL ANAEMIA
     Route: 065

REACTIONS (1)
  - ACUTE CHEST SYNDROME [None]
